FAERS Safety Report 12653485 (Version 1)
Quarter: 2016Q3

REPORT INFORMATION
  Report Type: Spontaneous
  Country: US (occurrence: US)
  Receive Date: 20160815
  Receipt Date: 20160815
  Transmission Date: 20161109
  Serious: No
  Sender: FDA-Public Use
  Company Number: US-DEPOMED, INC.-US-2016DEP009480

PATIENT

DRUGS (8)
  1. TIZANIDINE. [Concomitant]
     Active Substance: TIZANIDINE
     Indication: INSOMNIA
  2. TESTOSTERONE. [Concomitant]
     Active Substance: TESTOSTERONE
     Indication: HYPOPITUITARISM
     Dosage: UNK, ONCE THREE TIMES A WEEK
     Dates: start: 199609
  3. CAMBIA [Suspect]
     Active Substance: DICLOFENAC POTASSIUM
     Indication: MUSCLE SPASMS
     Dosage: 50 MG, QD
     Route: 048
     Dates: start: 2008
  4. MELATONIN [Concomitant]
     Active Substance: MELATONIN
     Indication: INSOMNIA
     Dosage: UNK, QD
     Route: 048
  5. SYNTHROID [Concomitant]
     Active Substance: LEVOTHYROXINE SODIUM
     Indication: HYPOPITUITARISM
     Dosage: 137 ?G, QD
     Route: 048
     Dates: start: 1966
  6. TIZANIDINE. [Concomitant]
     Active Substance: TIZANIDINE
     Indication: INTERVERTEBRAL DISC DEGENERATION
     Dosage: 12 MG, ONCE DAILY AT NIGHT
     Route: 048
     Dates: start: 200710
  7. PREDNISONE. [Concomitant]
     Active Substance: PREDNISONE
     Indication: HYPOPITUITARISM
     Dosage: 2 OR 3 OR 4 MG, PRN
     Route: 048
  8. PREDNISONE. [Concomitant]
     Active Substance: PREDNISONE
     Indication: STRESS

REACTIONS (3)
  - Malaise [Recovered/Resolved]
  - Off label use [Not Recovered/Not Resolved]
  - Drug ineffective [Not Recovered/Not Resolved]

NARRATIVE: CASE EVENT DATE: 2008
